FAERS Safety Report 8257177-X (Version None)
Quarter: 2012Q1

REPORT INFORMATION
  Report Type: 
  Country: None (occurrence: None)
  Receive Date: 20120330
  Receipt Date: 20120321
  Transmission Date: 20120608
  Serious: Yes (Hospitalization)
  Sender: FDA-Public Use
  Company Number: WAES 1203USA03002

PATIENT
  Age: 82 Year
  Sex: Male

DRUGS (2)
  1. EPINASTINE HYDROCHLORIDE [Concomitant]
  2. ZOLINZA [Suspect]
     Indication: MYCOSIS FUNGOIDES
     Dosage: 400 MG/DAILY PO
     Route: 048
     Dates: start: 20120210, end: 20120309

REACTIONS (6)
  - DECREASED APPETITE [None]
  - FATIGUE [None]
  - PYREXIA [None]
  - BLOOD LACTATE DEHYDROGENASE INCREASED [None]
  - DEHYDRATION [None]
  - RENAL FAILURE [None]
